FAERS Safety Report 10796089 (Version 2)
Quarter: 2015Q1

REPORT INFORMATION
  Report Type: Report from Study
  Country: GB (occurrence: GB)
  Receive Date: 20150216
  Receipt Date: 20150324
  Transmission Date: 20150721
  Serious: Yes (Other)
  Sender: FDA-Public Use
  Company Number: GB-THROMBOGENICS NV-CLI-2014-1083

PATIENT
  Age: 55 Year
  Sex: Female

DRUGS (1)
  1. JETREA [Suspect]
     Active Substance: OCRIPLASMIN
     Indication: MACULAR HOLE
     Dosage: 0.125 MG, ONE TIME DOSE
     Route: 031
     Dates: start: 20140715, end: 20140715

REACTIONS (11)
  - Photopsia [Unknown]
  - Off label use [Unknown]
  - Headache [Not Recovered/Not Resolved]
  - Disease progression [Recovered/Resolved]
  - Macular hole [Recovered/Resolved]
  - Chromatopsia [Recovered/Resolved]
  - Visual impairment [Unknown]
  - Photophobia [Not Recovered/Not Resolved]
  - Visual acuity reduced [Recovered/Resolved]
  - Night blindness [Not Recovered/Not Resolved]
  - Drug ineffective for unapproved indication [Unknown]

NARRATIVE: CASE EVENT DATE: 20140716
